FAERS Safety Report 7024542-8 (Version None)
Quarter: 2010Q4

REPORT INFORMATION
  Report Type: 
  Country: None (occurrence: None)
  Receive Date: 20101001
  Receipt Date: 20100925
  Transmission Date: 20110411
  Serious: Yes (Other)
  Sender: FDA-Public Use
  Company Number: B0677336A

PATIENT
  Age: 41 Year
  Sex: Male

DRUGS (1)
  1. RELENZA [Suspect]
     Indication: INFLUENZA
     Dosage: 10MG TWICE PER DAY
     Route: 055
     Dates: start: 20100831, end: 20100904

REACTIONS (3)
  - HEPATIC STEATOSIS [None]
  - HYPERLIPIDAEMIA [None]
  - TRANSAMINASES INCREASED [None]
